FAERS Safety Report 20221818 (Version 1)
Quarter: 2021Q4

REPORT INFORMATION
  Report Type: Spontaneous
  Country: US (occurrence: None)
  Receive Date: 20211222
  Receipt Date: 20211222
  Transmission Date: 20220303
  Serious: No
  Sender: FDA-Public Use
  Company Number: None

PATIENT
  Age: 58 Year
  Weight: 78 kg

DRUGS (1)
  1. PRIVIGEN [Suspect]
     Active Substance: HUMAN IMMUNOGLOBULIN G
     Indication: Myasthenia gravis
     Dosage: OTHER FREQUENCY : 3 DAYS EVERY 3WEEK;?
     Route: 042

REACTIONS (5)
  - Rash erythematous [None]
  - Tongue pruritus [None]
  - Swollen tongue [None]
  - Dyspnoea [None]
  - Musculoskeletal stiffness [None]

NARRATIVE: CASE EVENT DATE: 20211221
